FAERS Safety Report 14734316 (Version 1)
Quarter: 2018Q2

REPORT INFORMATION
  Report Type: Spontaneous
  Country: US (occurrence: US)
  Receive Date: 20180409
  Receipt Date: 20180409
  Transmission Date: 20180711
  Serious: No
  Sender: FDA-Public Use
  Company Number: US-TEVA-2018-US-871278

PATIENT
  Sex: Male

DRUGS (1)
  1. GUANFACINE. [Suspect]
     Active Substance: GUANFACINE

REACTIONS (2)
  - Medication residue present [Unknown]
  - Malabsorption [Unknown]
